FAERS Safety Report 5136610-6 (Version None)
Quarter: 2006Q4

REPORT INFORMATION
  Report Type: 
  Country: None (occurrence: None)
  Receive Date: 20061027
  Receipt Date: 20060928
  Transmission Date: 20070319
  Serious: Yes (Other)
  Sender: FDA-Public Use
  Company Number: SE-ABBOTT-06P-150-0345268-00

PATIENT
  Age: 42 Year
  Sex: Female

DRUGS (7)
  1. NORVIR [Suspect]
     Indication: HIV INFECTION
     Route: 048
     Dates: start: 20050914, end: 20060909
  2. LAMIVUDINE [Suspect]
     Indication: HIV INFECTION
     Route: 048
     Dates: start: 20050914
  3. VIREAD [Suspect]
     Indication: HIV INFECTION
     Route: 048
     Dates: start: 20050914, end: 20060909
  4. REYATAZ [Suspect]
     Indication: HIV INFECTION
     Route: 048
     Dates: start: 20050914
  5. CYANOCOBALAMIN [Concomitant]
     Indication: DRUG USE FOR UNKNOWN INDICATION
     Route: 048
  6. BACTRIM [Concomitant]
     Indication: DRUG USE FOR UNKNOWN INDICATION
  7. POLYSACCHARIDE-IRON COMPLEX [Concomitant]
     Indication: DRUG USE FOR UNKNOWN INDICATION

REACTIONS (5)
  - ATRIOVENTRICULAR BLOCK [None]
  - DIZZINESS [None]
  - EXTRASYSTOLES [None]
  - SYNCOPE [None]
  - VENTRICULAR EXTRASYSTOLES [None]
